FAERS Safety Report 12393459 (Version 1)
Quarter: 2016Q2

REPORT INFORMATION
  Report Type: Spontaneous
  Country: US (occurrence: None)
  Receive Date: 20160520
  Receipt Date: 20160520
  Transmission Date: 20160815
  Serious: Yes (Hospitalization, Disabling)
  Sender: FDA-Public Use
  Company Number: None

PATIENT
  Age: 66 Year
  Sex: Female
  Weight: 117.94 kg

DRUGS (11)
  1. MAGNESIUM [Concomitant]
     Active Substance: MAGNESIUM
  2. VITAMIN E [Concomitant]
     Active Substance: .ALPHA.-TOCOPHEROL
  3. VITAMIN B [Concomitant]
     Active Substance: VITAMIN B
  4. COCONUT OIL [Concomitant]
     Active Substance: COCONUT OIL
  5. CINNAMON. [Concomitant]
     Active Substance: CINNAMON
  6. IRON [Concomitant]
     Active Substance: IRON
  7. CRANBERRY. [Concomitant]
     Active Substance: CRANBERRY
  8. STOOL SOFTENER [Concomitant]
     Active Substance: DOCUSATE CALCIUM
  9. PROLIA [Suspect]
     Active Substance: DENOSUMAB
     Indication: OSTEOPOROSIS PROPHYLAXIS
     Dosage: 1 INJECTION(S) EVERY 6 MONTHS GIVEN INTO/UNDER THE SKIN
  10. FISH OIL [Concomitant]
     Active Substance: FISH OIL
  11. VITAMIN D [Concomitant]
     Active Substance: CHOLECALCIFEROL

REACTIONS (3)
  - Muscle injury [None]
  - Femur fracture [None]
  - Abdominal pain lower [None]
